FAERS Safety Report 9057352 (Version 2)
Quarter: 2013Q2

REPORT INFORMATION
  Report Type: Spontaneous
  Country: JP (occurrence: JP)
  Receive Date: 20130204
  Receipt Date: 20130510
  Transmission Date: 20140414
  Serious: Yes (Hospitalization)
  Sender: FDA-Public Use
  Company Number: PHHY2013JP008820

PATIENT
  Age: 76 Year
  Sex: Female
  Weight: 68 kg

DRUGS (7)
  1. PREDNISOLONE SANDOZ [Suspect]
     Indication: AUTOIMMUNE HEPATITIS
     Dosage: 40 MG/DAY
     Route: 048
  2. PREDNISOLONE SANDOZ [Suspect]
     Dosage: 15 MG/DAY
     Route: 048
  3. PREDNISOLONE SANDOZ [Suspect]
     Dosage: 10 MG/DAY
     Route: 048
  4. PREDNISOLONE SANDOZ [Suspect]
     Dosage: 10 MG/TIME EVERY OTHER DAY
     Route: 048
  5. ALENDRONATE SODIUM [Concomitant]
  6. FAMOTIDINE [Concomitant]
  7. URSODIOL [Concomitant]
     Indication: AUTOIMMUNE HEPATITIS
     Dosage: 600 MG, UNK

REACTIONS (5)
  - Pneumocystis jirovecii pneumonia [Recovering/Resolving]
  - Pyrexia [Recovering/Resolving]
  - Cough [Recovering/Resolving]
  - Oral candidiasis [Recovered/Resolved]
  - Gastric ulcer [Recovered/Resolved]
